FAERS Safety Report 21794435 (Version 1)
Quarter: 2022Q4

REPORT INFORMATION
  Report Type: Other
  Country: None (occurrence: US)
  Receive Date: 20221229
  Receipt Date: 20221229
  Transmission Date: 20230113
  Serious: Yes (Hospitalization, Other)
  Sender: FDA-Public Use
  Company Number: US-B.Braun Medical Inc.-2136265

PATIENT
  Age: 44 Year
  Sex: Female

DRUGS (2)
  1. HEPARIN SODIUM IN DEXTROSE [Suspect]
     Active Substance: HEPARIN SODIUM
  2. MAGNESIUM SULFATE [Suspect]
     Active Substance: MAGNESIUM SULFATE

REACTIONS (2)
  - Hyperkalaemia [Recovering/Resolving]
  - Exposure during pregnancy [Recovering/Resolving]
